FAERS Safety Report 6618245-9 (Version None)
Quarter: 2010Q1

REPORT INFORMATION
  Report Type: 
  Country: None (occurrence: None)
  Receive Date: 20100308
  Receipt Date: 20100223
  Transmission Date: 20100710
  Serious: No
  Sender: FDA-Public Use
  Company Number: US-JNJFOC-20100110383

PATIENT
  Sex: Male
  Weight: 73.03 kg

DRUGS (7)
  1. DURAGESIC-100 [Suspect]
     Indication: RENAL NEOPLASM
     Route: 062
  2. DURAGESIC-100 [Suspect]
     Indication: NEOPLASM MALIGNANT
     Route: 062
  3. CONTRAST DYE [Suspect]
     Indication: RENAL NEOPLASM
     Route: 042
  4. LEXAPRO [Concomitant]
     Indication: DRUG USE FOR UNKNOWN INDICATION
     Route: 048
  5. ATIVAN [Concomitant]
     Indication: NERVOUSNESS
     Route: 048
  6. LEVOXYL [Concomitant]
     Indication: THYROID DISORDER
     Route: 048
  7. PRILOSEC [Concomitant]
     Indication: ABDOMINAL PAIN UPPER
     Route: 048

REACTIONS (3)
  - ACNE [None]
  - PRURITUS [None]
  - WRONG TECHNIQUE IN DRUG USAGE PROCESS [None]
